FAERS Safety Report 25118038 (Version 1)
Quarter: 2025Q1

REPORT INFORMATION
  Report Type: Spontaneous
  Country: US (occurrence: None)
  Receive Date: 20250324
  Receipt Date: 20250324
  Transmission Date: 20250408
  Serious: Yes (Hospitalization)
  Sender: FDA-CTU
  Company Number: None

PATIENT
  Age: 22 Year
  Sex: Female
  Weight: 63.5 kg

DRUGS (2)
  1. CLOZAPINE [Suspect]
     Active Substance: CLOZAPINE
     Indication: Psychotic disorder
     Dates: start: 20250116, end: 20250130
  2. DIVALPROEX SODIUM DR [Concomitant]
     Active Substance: DIVALPROEX SODIUM
     Dates: start: 20241226, end: 20250130

REACTIONS (8)
  - Nausea [None]
  - Vomiting [None]
  - Tachycardia [None]
  - Myocarditis [None]
  - Pyrexia [None]
  - Abdominal distension [None]
  - Epigastric discomfort [None]
  - Faecaloma [None]

NARRATIVE: CASE EVENT DATE: 20250130
